FAERS Safety Report 7410711-1 (Version None)
Quarter: 2011Q2

REPORT INFORMATION
  Report Type: 
  Country: None (occurrence: None)
  Receive Date: 20110405
  Receipt Date: 20110321
  Transmission Date: 20111010
  Serious: Yes (Other)
  Sender: FDA-Public Use
  Company Number: 1000019047

PATIENT
  Age: 30 Year
  Sex: Female

DRUGS (4)
  1. LAMOTRIGINE [Suspect]
     Dosage: UP TO 200 MG (1 IN 1 D)
  2. BUPROPION (BUPROPION) [Suspect]
     Dosage: UP TO 300 MG (1 IN 1 D)
  3. QUETIAPINE FUMARATE [Suspect]
     Dosage: UP TO 400 MG (1 IN 1 D)
  4. ESCITALOPRAM [Suspect]
     Dosage: UP TO 20 MG (1 IN 1 D)

REACTIONS (2)
  - DIABETES INSIPIDUS [None]
  - POLYDIPSIA [None]
